FAERS Safety Report 9197337 (Version 1)
Quarter: 2013Q1

REPORT INFORMATION
  Report Type: Spontaneous
  Country: US (occurrence: US)
  Receive Date: 20130328
  Receipt Date: 20130328
  Transmission Date: 20140127
  Serious: Yes (Hospitalization)
  Sender: FDA-Public Use
  Company Number: US-GLAXOSMITHKLINE-A0770776A

PATIENT
  Age: 62 Year
  Sex: Female
  Weight: 125.5 kg

DRUGS (2)
  1. AVANDIA [Suspect]
     Indication: DIABETES MELLITUS
     Dosage: 8MG PER DAY
     Route: 048
     Dates: start: 20011102, end: 200403
  2. CELEBREX [Concomitant]
     Dosage: 200MG TWICE PER DAY
     Dates: end: 200403

REACTIONS (3)
  - Aortic valve incompetence [Not Recovered/Not Resolved]
  - Cardiac failure congestive [Unknown]
  - Coronary artery disease [Unknown]
